FAERS Safety Report 9404992 (Version 1)
Quarter: 2013Q3

REPORT INFORMATION
  Report Type: Spontaneous
  Country: US (occurrence: US)
  Receive Date: 20130717
  Receipt Date: 20130717
  Transmission Date: 20140515
  Serious: Yes (Death, Hospitalization)
  Sender: FDA-Public Use
  Company Number: US-BRISTOL-MYERS SQUIBB COMPANY-18766493

PATIENT
  Age: 69 Year
  Sex: Female

DRUGS (3)
  1. YERVOY [Suspect]
     Indication: METASTATIC MALIGNANT MELANOMA
     Dosage: 2 DOSE:04NOV12
     Route: 042
     Dates: start: 20121010
  2. DEXAMETHASONE [Suspect]
  3. LEVOTHYROXINE [Concomitant]

REACTIONS (2)
  - Malignant neoplasm progression [Fatal]
  - Muscular weakness [Unknown]
